FAERS Safety Report 8541243-5 (Version None)
Quarter: 2012Q3

REPORT INFORMATION
  Report Type: 
  Country: None (occurrence: None)
  Receive Date: 20120716
  Receipt Date: 20120709
  Transmission Date: 20120928
  Serious: Yes (Death)
  Sender: FDA-Public Use
  Company Number: DSA_58029_2012

PATIENT
  Age: 81 Year
  Sex: Female

DRUGS (1)
  1. XENAZINE [Suspect]
     Indication: HUNTINGTON'S DISEASE
     Dosage: 12.5 MG, TID, ORAL
     Route: 048
     Dates: start: 20090630, end: 20120521

REACTIONS (1)
  - DEATH [None]
